FAERS Safety Report 5621441-0 (Version None)
Quarter: 2008Q1

REPORT INFORMATION
  Report Type: 
  Country: None (occurrence: None)
  Receive Date: 20080110
  Receipt Date: 20070509
  Transmission Date: 20080703
  Serious: Yes (Other)
  Sender: FDA-Public Use
  Company Number: 01-013

PATIENT
  Age: 69 Year
  Sex: Male

DRUGS (5)
  1. SOTALOL HCL 80 MG TABLETS [Suspect]
     Dosage: 1/2 TAB P.O. B.I.D.
     Route: 048
     Dates: start: 20070420, end: 20070503
  2. SOTALOL HCL 80 MG TABLETS [Suspect]
  3. SYNTHROID [Concomitant]
  4. FOSAMAX [Concomitant]
  5. ASPIRIN [Concomitant]

REACTIONS (2)
  - HEART RATE INCREASED [None]
  - MUSCULAR WEAKNESS [None]
